FAERS Safety Report 21927804 (Version 8)
Quarter: 2024Q2

REPORT INFORMATION
  Report Type: Spontaneous
  Country: IN (occurrence: IN)
  Receive Date: 20230130
  Receipt Date: 20240628
  Transmission Date: 20240716
  Serious: Yes (Other)
  Sender: FDA-Public Use
  Company Number: IN-PFIZER INC-2020033209

PATIENT
  Age: 65 Year
  Sex: Male

DRUGS (8)
  1. SUTENT [Suspect]
     Active Substance: SUNITINIB MALATE
     Indication: Metastatic renal cell carcinoma
     Dosage: 37.5 MG, 1X/DAY
     Route: 048
     Dates: start: 20180221
  2. SUTENT [Suspect]
     Active Substance: SUNITINIB MALATE
     Dosage: FOR 15 DAYS
     Route: 048
  3. SUTENT [Suspect]
     Active Substance: SUNITINIB MALATE
     Dosage: 14DAYS
     Route: 048
  4. SUTENT [Suspect]
     Active Substance: SUNITINIB MALATE
     Dosage: OD, 2 WEEKS ON 2 WEEKS OFF
  5. SUTENT [Suspect]
     Active Substance: SUNITINIB MALATE
     Dosage: 2WKS ON 2WKS OFF
     Route: 048
     Dates: start: 201803
  6. SUTENT [Suspect]
     Active Substance: SUNITINIB MALATE
     Dosage: 15 DAYS
     Route: 048
  7. SUTENT [Suspect]
     Active Substance: SUNITINIB MALATE
     Dosage: UNK
     Dates: end: 202211
  8. SUTENT [Suspect]
     Active Substance: SUNITINIB MALATE
     Dosage: 37.5 MG, 1X/DAY
     Route: 048

REACTIONS (5)
  - Paralysis [Recovered/Resolved]
  - Calciphylaxis [Unknown]
  - Stomatitis [Unknown]
  - Asthenia [Unknown]
  - Oedema peripheral [Unknown]
